FAERS Safety Report 13683228 (Version 1)
Quarter: 2017Q2

REPORT INFORMATION
  Report Type: Spontaneous
  Country: US (occurrence: US)
  Receive Date: 20170623
  Receipt Date: 20170623
  Transmission Date: 20170830
  Serious: No
  Sender: FDA-Public Use
  Company Number: US-MALLINCKRODT-T201701804

PATIENT
  Sex: Female

DRUGS (1)
  1. H.P. ACTHAR [Suspect]
     Active Substance: CORTICOTROPIN
     Indication: RHEUMATOID ARTHRITIS
     Dosage: 40 UNITS/ 0.5 ML, 2 TIMES A WEEK(DISCARD 28 DAYS AFTER INITIAL USE)
     Route: 058

REACTIONS (2)
  - Cataract [Not Recovered/Not Resolved]
  - Intraocular pressure test [Not Recovered/Not Resolved]
